FAERS Safety Report 23518203 (Version 2)
Quarter: 2024Q1

REPORT INFORMATION
  Report Type: Spontaneous
  Country: FR (occurrence: FR)
  Receive Date: 20240213
  Receipt Date: 20240222
  Transmission Date: 20240410
  Serious: Yes (Life-Threatening, Other)
  Sender: FDA-Public Use
  Company Number: FR-OTSUKA-2024_003758

PATIENT
  Age: 68 Year
  Sex: Female
  Weight: 53 kg

DRUGS (5)
  1. ABILIFY MAINTENA [Suspect]
     Active Substance: ARIPIPRAZOLE
     Indication: Schizophrenia
     Dosage: 1 DF FOR 28 DAYS
     Route: 030
  2. TRANXENE [Suspect]
     Active Substance: CLORAZEPATE DIPOTASSIUM
     Indication: Schizophrenia
     Dosage: 1 DF, AS NECESSARY
     Route: 048
  3. TRIMEPRAZINE [Suspect]
     Active Substance: TRIMEPRAZINE
     Indication: Schizophrenia
     Dosage: 70 GTT (DROP (1/12 MILLILITRE) QD
     Route: 048
  4. SPAGULAX [Suspect]
     Active Substance: HERBALS\PLANTAGO OVATA SEED
     Indication: Constipation
     Dosage: 1 DF, AS NECESSARY
     Route: 048
     Dates: end: 202308
  5. NEXAVAR [Suspect]
     Active Substance: SORAFENIB
     Indication: Hepatocellular carcinoma
     Dosage: UNK
     Route: 048
     Dates: start: 202305

REACTIONS (1)
  - Ischaemic stroke [Recovering/Resolving]

NARRATIVE: CASE EVENT DATE: 20230812
